FAERS Safety Report 9527856 (Version 1)
Quarter: 2013Q3

REPORT INFORMATION
  Report Type: Spontaneous
  Country: US (occurrence: US)
  Receive Date: 20130917
  Receipt Date: 20130917
  Transmission Date: 20140515
  Serious: No
  Sender: FDA-Public Use
  Company Number: US-PFIZER INC-2013265648

PATIENT
  Age: 79 Year
  Sex: Female

DRUGS (2)
  1. SUTENT [Suspect]
     Dosage: UNK, CYCLIC
     Route: 048
     Dates: start: 201308
  2. POTASSIUM [Concomitant]
     Dosage: UNK

REACTIONS (1)
  - Rash [Unknown]
